FAERS Safety Report 21852862 (Version 3)
Quarter: 2023Q1

REPORT INFORMATION
  Report Type: Report from Study
  Country: US (occurrence: US)
  Receive Date: 20230112
  Receipt Date: 20230124
  Transmission Date: 20230418
  Serious: Yes (Hospitalization, Other)
  Sender: FDA-Public Use
  Company Number: US-EXELIXIS-CABO-22058818

PATIENT
  Age: 65 Year
  Sex: Female

DRUGS (10)
  1. CABOMETYX [Suspect]
     Active Substance: CABOZANTINIB S-MALATE
     Indication: Renal cell carcinoma
     Dosage: 40 MG, QD
     Dates: start: 20221028, end: 20230105
  2. CABOMETYX [Suspect]
     Active Substance: CABOZANTINIB S-MALATE
     Dosage: 40 MG, QD
     Dates: start: 202301, end: 202301
  3. OPDIVO [Suspect]
     Active Substance: NIVOLUMAB
     Indication: Renal cell carcinoma
     Dosage: UNK, Q2WEEKS
     Dates: start: 20221028
  4. FAMOTIDINE [Concomitant]
     Active Substance: FAMOTIDINE
     Dosage: UNK
  5. LISINOPRIL [Concomitant]
     Active Substance: LISINOPRIL
     Dosage: UNK
  6. METOPROLOL SUCCINATE [Concomitant]
     Active Substance: METOPROLOL SUCCINATE
     Dosage: UNK
  7. VITAMINS [Concomitant]
     Active Substance: VITAMINS
     Dosage: UNK
  8. OMEGA 3 [Concomitant]
     Active Substance: CAPSAICIN
     Dosage: UNK
  9. IRON [Concomitant]
     Active Substance: IRON
     Dosage: UNK
  10. GABAPENTIN [Concomitant]
     Active Substance: GABAPENTIN

REACTIONS (21)
  - Blood pressure increased [Recovering/Resolving]
  - Cerebrovascular accident [Unknown]
  - Neoplasm [Not Recovered/Not Resolved]
  - Lip swelling [Not Recovered/Not Resolved]
  - Ageusia [Not Recovered/Not Resolved]
  - Ear discomfort [Recovered/Resolved]
  - Dysphonia [Recovered/Resolved]
  - Constipation [Recovering/Resolving]
  - Abdominal pain upper [Recovering/Resolving]
  - Blood pressure increased [Recovered/Resolved]
  - Dry skin [Not Recovered/Not Resolved]
  - Fatigue [Recovering/Resolving]
  - Stomatitis [Recovering/Resolving]
  - Diarrhoea [Not Recovered/Not Resolved]
  - Chills [Recovered/Resolved]
  - Procedural pain [Recovering/Resolving]
  - Peripheral swelling [Unknown]
  - Muscular weakness [Not Recovered/Not Resolved]
  - Haemoglobin increased [Recovering/Resolving]
  - Decreased appetite [Recovered/Resolved]
  - Blood potassium decreased [Unknown]

NARRATIVE: CASE EVENT DATE: 20221221
